FAERS Safety Report 10036077 (Version 2)
Quarter: 2014Q1

REPORT INFORMATION
  Report Type: Spontaneous
  Country: BR (occurrence: BR)
  Receive Date: 20140325
  Receipt Date: 20140325
  Transmission Date: 20141002
  Serious: Yes (Hospitalization, Other)
  Sender: FDA-Public Use
  Company Number: BR-PFIZER INC-2014072731

PATIENT
  Age: 63 Year
  Sex: Female

DRUGS (1)
  1. PRISTIQ [Suspect]
     Indication: DEPRESSION
     Dosage: 100 MG, UNK

REACTIONS (10)
  - Feeling abnormal [Unknown]
  - Depressed mood [Unknown]
  - Drug abuser [Unknown]
  - Dyspnoea [Unknown]
  - Dizziness [Unknown]
  - Malaise [Unknown]
  - Hypertension [Unknown]
  - Tinnitus [Unknown]
  - Emotional distress [Unknown]
  - Nervousness [Unknown]
